FAERS Safety Report 21120170 (Version 4)
Quarter: 2022Q3

REPORT INFORMATION
  Report Type: Spontaneous
  Country: CO (occurrence: CO)
  Receive Date: 20220722
  Receipt Date: 20220915
  Transmission Date: 20221026
  Serious: No
  Sender: FDA-Public Use
  Company Number: CO-PFIZER INC-PV202200019170

PATIENT
  Age: 16 Year
  Sex: Male

DRUGS (2)
  1. GENOTROPIN [Suspect]
     Active Substance: SOMATROPIN
     Dosage: 0.6 MG, DAILY
     Route: 058
     Dates: start: 202103
  2. GENOTROPIN [Suspect]
     Active Substance: SOMATROPIN
     Dosage: 2.0MG DAILY
     Route: 058
     Dates: start: 202101

REACTIONS (5)
  - Device operational issue [Unknown]
  - Device failure [Unknown]
  - Device occlusion [Unknown]
  - Device power source issue [Unknown]
  - Device electrical finding [Unknown]
